FAERS Safety Report 14508450 (Version 1)
Quarter: 2018Q1

REPORT INFORMATION
  Report Type: Spontaneous
  Country: US (occurrence: US)
  Receive Date: 20180209
  Receipt Date: 20180209
  Transmission Date: 20180509
  Serious: No
  Sender: FDA-Public Use
  Company Number: US-ENDO PHARMACEUTICALS INC-2017-001296

PATIENT
  Age: 87 Year
  Sex: Female

DRUGS (2)
  1. CLINDAMYCIN. [Concomitant]
     Active Substance: CLINDAMYCIN
     Indication: LUNG INFECTION
  2. METHYLPREDNISOLONE TABLETS 4MG [Suspect]
     Active Substance: METHYLPREDNISOLONE
     Indication: LUNG INFECTION
     Dosage: 6 DF, DAILY
     Route: 048
     Dates: start: 20170309

REACTIONS (5)
  - Product physical issue [Unknown]
  - Insomnia [Unknown]
  - Abnormal dreams [Unknown]
  - Product quality issue [Unknown]
  - Nightmare [Unknown]

NARRATIVE: CASE EVENT DATE: 20170310
